FAERS Safety Report 17259947 (Version 2)
Quarter: 2020Q1

REPORT INFORMATION
  Report Type: Report from Study
  Country: US (occurrence: US)
  Receive Date: 20200111
  Receipt Date: 20200207
  Transmission Date: 20200409
  Serious: Yes (Death)
  Sender: FDA-Public Use
  Company Number: US-ROCHE-2520893

PATIENT
  Sex: Female

DRUGS (1)
  1. CELLCEPT [Suspect]
     Active Substance: MYCOPHENOLATE MOFETIL\MYCOPHENOLATE MOFETIL HYDROCHLORIDE
     Indication: AUTOIMMUNE HEPATITIS
     Dosage: BID
     Route: 065

REACTIONS (3)
  - Off label use [Unknown]
  - Road traffic accident [Fatal]
  - Intentional product use issue [Unknown]
